FAERS Safety Report 5719611-6 (Version None)
Quarter: 2008Q2

REPORT INFORMATION
  Report Type: 
  Country: None (occurrence: None)
  Receive Date: 20080428
  Receipt Date: 20080418
  Transmission Date: 20081010
  Serious: Yes (Hospitalization)
  Sender: FDA-Public Use
  Company Number: B0517634A

PATIENT
  Age: 38 Year
  Sex: Female

DRUGS (1)
  1. AMOXICILLIN AND CLAVULANATE POTASSIUM [Suspect]
     Indication: ACUTE SINUSITIS
     Route: 048
     Dates: start: 20071024, end: 20071031

REACTIONS (9)
  - ABDOMINAL PAIN UPPER [None]
  - CHROMATURIA [None]
  - FAECES DISCOLOURED [None]
  - HEPATITIS CHOLESTATIC [None]
  - HYPERBILIRUBINAEMIA [None]
  - JAUNDICE [None]
  - NAUSEA [None]
  - PRURITUS GENERALISED [None]
  - RASH [None]
